FAERS Safety Report 6987133-0 (Version None)
Quarter: 2010Q3

REPORT INFORMATION
  Report Type: 
  Country: None (occurrence: None)
  Receive Date: 20100916
  Receipt Date: 20100908
  Transmission Date: 20110219
  Serious: Yes (Life-Threatening, Other)
  Sender: FDA-Public Use
  Company Number: JP-WYE-H17007110

PATIENT
  Sex: Male

DRUGS (5)
  1. ZOSYN [Suspect]
     Indication: LOBAR PNEUMONIA
     Route: 042
     Dates: start: 20100805, end: 20100811
  2. ZOSYN [Suspect]
     Indication: PYELONEPHRITIS
  3. OLMETEC [Concomitant]
     Indication: HYPERTENSION
     Dosage: 40 MG DAILY
     Route: 048
  4. SPLENDIL [Concomitant]
     Dosage: 10 MG DAILY
     Route: 048
     Dates: start: 20100805
  5. TEGRETOL [Concomitant]
     Indication: EPILEPSY
     Dosage: 400 MG DAILY
     Route: 048

REACTIONS (2)
  - DISSEMINATED INTRAVASCULAR COAGULATION [None]
  - THROMBOCYTOPENIA [None]
